FAERS Safety Report 5562676-5 (Version None)
Quarter: 2007Q4

REPORT INFORMATION
  Report Type: 
  Country: None (occurrence: None)
  Receive Date: 20071211
  Receipt Date: 20071211
  Transmission Date: 20080405
  Serious: Yes (Other)
  Sender: FDA-Public Use
  Company Number: None

PATIENT
  Age: 59 Year
  Sex: Female

DRUGS (1)
  1. CALCIUM CARBONATE TABLET (CALCIUM CARBONATE) [Suspect]
     Indication: OSTEOPOROSIS
     Dosage: 2 TABLET PER DAY / ORAL
     Route: 048

REACTIONS (4)
  - CONDITION AGGRAVATED [None]
  - NEPHROLITHIASIS [None]
  - OSTEOPOROSIS [None]
  - THERAPEUTIC RESPONSE UNEXPECTED [None]
